FAERS Safety Report 6606635-X (Version None)
Quarter: 2010Q1

REPORT INFORMATION
  Report Type: 
  Country: None (occurrence: None)
  Receive Date: 20100226
  Receipt Date: 20100128
  Transmission Date: 20100710
  Serious: Yes (Other)
  Sender: FDA-Public Use
  Company Number: JP-PFIZER INC-2009300622

PATIENT
  Age: 4 Year
  Sex: Female

DRUGS (5)
  1. METHYLPREDNISOLONE SODIUM SUCCINATE [Suspect]
     Dosage: 4 MG/KG/DAY
  2. PREDNISOLONE [Suspect]
     Dosage: 1.5MG/KG/DAY
  3. METHOTREXATE SODIUM [Suspect]
     Indication: PROPHYLAXIS
  4. ANTITHYMOCYTE IMMUNOGLOBULIN [Suspect]
     Dosage: 2.5 MG/KG/DAY
  5. TACROLIMUS [Suspect]

REACTIONS (2)
  - HYPOKALAEMIA [None]
  - SYSTEMIC MYCOSIS [None]
